FAERS Safety Report 7137650-8 (Version None)
Quarter: 2010Q4

REPORT INFORMATION
  Report Type: 
  Country: None (occurrence: None)
  Receive Date: 20101206
  Receipt Date: 20101123
  Transmission Date: 20110411
  Serious: Yes (Other)
  Sender: FDA-Public Use
  Company Number: FR-JNJFOC-20101108621

PATIENT
  Age: 62 Year
  Sex: Male

DRUGS (8)
  1. INFLIXIMAB, RECOMBINANT [Suspect]
     Indication: RHEUMATOID ARTHRITIS
     Dosage: 7 INFUSIONS
     Route: 042
  2. AZATHIOPRINE [Concomitant]
     Indication: RHEUMATOID ARTHRITIS
  3. PREDNISONE [Concomitant]
     Indication: RHEUMATOID ARTHRITIS
  4. CALCIUM CARBONATE AND VITAMIN D [Concomitant]
     Indication: RHEUMATOID ARTHRITIS
  5. OMEPRAZOLE [Concomitant]
  6. FLUINDIONE [Concomitant]
     Indication: CARDIAC VALVE PROSTHESIS USER
  7. GINKGO BILOBA [Concomitant]
  8. LORATADINE [Concomitant]

REACTIONS (1)
  - PEMPHIGUS [None]
